FAERS Safety Report 9984551 (Version 1)
Quarter: 2014Q1

REPORT INFORMATION
  Report Type: Spontaneous
  Country: US (occurrence: US)
  Receive Date: 20140307
  Receipt Date: 20140307
  Transmission Date: 20141002
  Serious: No
  Sender: FDA-Public Use
  Company Number: US-LUNDBECK-DKLU1097612

PATIENT
  Age: 15 Year
  Sex: Female

DRUGS (6)
  1. SABRIL (TABLET) [Suspect]
     Indication: INFANTILE SPASMS
     Dates: start: 20131230
  2. SABRIL (TABLET) [Suspect]
  3. SABRIL (TABLET) [Suspect]
  4. VALIUM [Concomitant]
     Indication: PRODUCT USED FOR UNKNOWN INDICATION
  5. DEPAKOTE [Concomitant]
     Indication: PRODUCT USED FOR UNKNOWN INDICATION
  6. KEPPRA [Concomitant]
     Indication: PRODUCT USED FOR UNKNOWN INDICATION

REACTIONS (1)
  - Drug dose omission [Unknown]
